FAERS Safety Report 14989270 (Version 2)
Quarter: 2018Q3

REPORT INFORMATION
  Report Type: Spontaneous
  Country: US (occurrence: US)
  Receive Date: 20180608
  Receipt Date: 20180706
  Transmission Date: 20181010
  Serious: Yes (Death, Other)
  Sender: FDA-Public Use
  Company Number: US-SAOL THERAPEUTICS-2018SAO00832

PATIENT
  Sex: Male

DRUGS (1)
  1. LIORESAL [Suspect]
     Active Substance: BACLOFEN
     Indication: MUSCLE SPASTICITY
     Dosage: 965 ?G, \DAY
     Route: 037
     Dates: start: 20060317

REACTIONS (4)
  - Respiratory failure [Fatal]
  - Brain injury [Unknown]
  - Pulmonary congestion [Fatal]
  - Cardiac failure [Fatal]

NARRATIVE: CASE EVENT DATE: 2015
